FAERS Safety Report 4684127-5 (Version None)
Quarter: 2005Q2

REPORT INFORMATION
  Report Type: 
  Country: None (occurrence: None)
  Receive Date: 20050526
  Receipt Date: 20050405
  Transmission Date: 20051028
  Serious: Yes (Death)
  Sender: FDA-Public Use
  Company Number: 05P-163-0296312

PATIENT
  Age: 67 Year
  Sex: Male

DRUGS (1)
  1. DEPAKOTE ER [Suspect]
     Dosage: 500 MG, 2 IN 1 D, PER ORAL
     Route: 048

REACTIONS (1)
  - DEATH [None]
